FAERS Safety Report 10213095 (Version 1)
Quarter: 2014Q2

REPORT INFORMATION
  Report Type: Spontaneous
  Country: CN (occurrence: CN)
  Receive Date: 20140603
  Receipt Date: 20140603
  Transmission Date: 20141212
  Serious: Yes (Other)
  Sender: FDA-Public Use
  Company Number: CN-ABBVIE-14K-035-1242146-00

PATIENT
  Age: 9 Year
  Sex: Female
  Weight: 38.5 kg

DRUGS (1)
  1. ENANTONE [Suspect]
     Indication: PRECOCIOUS PUBERTY

REACTIONS (1)
  - Weight increased [Recovering/Resolving]
